FAERS Safety Report 18951285 (Version 1)
Quarter: 2021Q1

REPORT INFORMATION
  Report Type: Other
  Country: US (occurrence: US)
  Receive Date: 20210228
  Receipt Date: 20210228
  Transmission Date: 20210420
  Serious: Yes (Other)
  Sender: FDA-Public Use
  Company Number: US-ROCHE-2773510

PATIENT
  Sex: Female

DRUGS (1)
  1. BEVACIZUMAB. [Suspect]
     Active Substance: BEVACIZUMAB
     Indication: OVARIAN EPITHELIAL CANCER
     Route: 065

REACTIONS (12)
  - Dermatitis [Unknown]
  - Oesophagitis [Unknown]
  - Depression [Unknown]
  - Haemorrhage intracranial [Unknown]
  - Fatigue [Unknown]
  - Toxicity to various agents [Unknown]
  - Vaginal haemorrhage [Unknown]
  - Optic neuropathy [Unknown]
  - Gastrointestinal toxicity [Unknown]
  - Odynophagia [Unknown]
  - Decreased appetite [Unknown]
  - Pneumonitis [Unknown]
